FAERS Safety Report 19781466 (Version 2)
Quarter: 2021Q3

REPORT INFORMATION
  Report Type: Report from Study
  Country: US (occurrence: US)
  Receive Date: 20210902
  Receipt Date: 20210930
  Transmission Date: 20211014
  Serious: Yes (Hospitalization, Other)
  Sender: FDA-Public Use
  Company Number: US-B.I. PHARMACEUTICALS,INC./RIDGEFIELD-2020-BI-064384

PATIENT
  Age: 73 Year
  Sex: Male

DRUGS (2)
  1. OFEV [Suspect]
     Active Substance: NINTEDANIB
     Indication: INTERSTITIAL LUNG DISEASE
  2. OFEV [Suspect]
     Active Substance: NINTEDANIB
     Indication: IDIOPATHIC PULMONARY FIBROSIS
     Dosage: 1 CA
     Route: 048
     Dates: start: 20201110

REACTIONS (24)
  - Cough [Unknown]
  - Abdominal discomfort [Not Recovered/Not Resolved]
  - Pain [Unknown]
  - Constipation [Unknown]
  - Disturbance in attention [Unknown]
  - Raynaud^s phenomenon [Unknown]
  - Exercise tolerance decreased [Unknown]
  - Depression [Unknown]
  - Hypersomnia [Unknown]
  - Product dose omission in error [Not Recovered/Not Resolved]
  - Cardiac failure congestive [Unknown]
  - Gastric disorder [Recovered/Resolved]
  - Tension headache [Unknown]
  - Diarrhoea [Not Recovered/Not Resolved]
  - Asthenia [Unknown]
  - Apathy [Unknown]
  - Dizziness [Not Recovered/Not Resolved]
  - Abdominal pain upper [Not Recovered/Not Resolved]
  - Product dose omission issue [Unknown]
  - Hypotension [Unknown]
  - Intentional dose omission [Unknown]
  - Headache [Unknown]
  - Productive cough [Unknown]
  - Oral pain [Unknown]

NARRATIVE: CASE EVENT DATE: 202108
